FAERS Safety Report 10916236 (Version 4)
Quarter: 2015Q3

REPORT INFORMATION
  Report Type: Spontaneous
  Country: US (occurrence: US)
  Receive Date: 20150316
  Receipt Date: 20150720
  Transmission Date: 20151125
  Serious: No
  Sender: FDA-Public Use
  Company Number: US-ASTRAZENECA-2015SE21200

PATIENT
  Age: 28797 Day
  Sex: Female
  Weight: 81.6 kg

DRUGS (15)
  1. METFORMIN [Concomitant]
     Active Substance: METFORMIN HYDROCHLORIDE
     Indication: TYPE 2 DIABETES MELLITUS
     Dates: start: 201503
  2. COQ10 [Concomitant]
     Active Substance: UBIDECARENONE
  3. BYDUREON [Suspect]
     Active Substance: EXENATIDE
     Indication: TYPE 2 DIABETES MELLITUS
     Route: 058
  4. BABY ASPIRIN [Concomitant]
     Active Substance: ASPIRIN
  5. GLIMEPIRIDE 2 [Concomitant]
     Indication: TYPE 2 DIABETES MELLITUS
     Dosage: 2 MG IN THE MORNING AND 2 MG AT NIGHT
  6. BYDUREON [Suspect]
     Active Substance: EXENATIDE
     Indication: TYPE 2 DIABETES MELLITUS
     Route: 058
     Dates: start: 201503
  7. GLIMEPIRIDE 2 [Concomitant]
     Indication: TYPE 2 DIABETES MELLITUS
     Dosage: 2 MG IN THE MORNING
  8. MULTI VITAMIN [Concomitant]
     Active Substance: VITAMINS
  9. BYDUREON [Suspect]
     Active Substance: EXENATIDE
     Indication: TYPE 2 DIABETES MELLITUS
     Route: 058
     Dates: start: 20150217
  10. METFORMIN [Concomitant]
     Active Substance: METFORMIN HYDROCHLORIDE
     Indication: TYPE 2 DIABETES MELLITUS
  11. IRBESARTAN. [Concomitant]
     Active Substance: IRBESARTAN
     Indication: HYPERTENSION
     Route: 048
  12. METFORMIN [Concomitant]
     Active Substance: METFORMIN HYDROCHLORIDE
     Indication: TYPE 2 DIABETES MELLITUS
  13. VITAMIN D [Concomitant]
     Active Substance: CHOLECALCIFEROL
  14. LIVALO [Concomitant]
     Active Substance: PITAVASTATIN CALCIUM
     Indication: BLOOD CHOLESTEROL INCREASED
     Route: 048
  15. AMMERAAL [Concomitant]

REACTIONS (5)
  - Injection site haemorrhage [Recovered/Resolved]
  - Blood glucose increased [Unknown]
  - Injection site mass [Unknown]
  - Device failure [Unknown]
  - Blood glucose decreased [Recovered/Resolved]

NARRATIVE: CASE EVENT DATE: 20150303
